FAERS Safety Report 8679581 (Version 2)
Quarter: 2013Q4

REPORT INFORMATION
  Report Type: Report from Study
  Country: US (occurrence: US)
  Receive Date: 20120724
  Receipt Date: 20131108
  Transmission Date: 20140711
  Serious: Yes (Other)
  Sender: FDA-Public Use
  Company Number: US-MSD-2012SP031694

PATIENT
  Age: 39 Year
  Sex: Female

DRUGS (6)
  1. PEG-INTRON [Suspect]
     Indication: HEPATITIS C
     Dosage: UNK UNK, UNKNOWN
     Route: 065
     Dates: start: 20020607, end: 20030103
  2. PEG-INTRON [Suspect]
     Dosage: UNK UNK, UNKNOWN
     Route: 065
     Dates: start: 20120607
  3. REBETOL [Suspect]
     Indication: HEPATITIS C
     Dosage: UNK UNK, UNKNOWN
     Route: 065
     Dates: start: 20020607, end: 20030103
  4. REBETOL [Suspect]
     Dosage: UNK UNK, UNKNOWN
     Route: 065
     Dates: start: 20120607
  5. METHADONE HYDROCHLORIDE [Concomitant]
     Indication: PRODUCT USED FOR UNKNOWN INDICATION
     Dosage: UNK UNK, UNKNOWN
     Route: 065
  6. HEMP [Concomitant]
     Indication: PRODUCT USED FOR UNKNOWN INDICATION
     Dosage: MEDICINAL MARIJUANA
     Route: 065

REACTIONS (2)
  - Thyroid disorder [Unknown]
  - Ammonia increased [Unknown]
